FAERS Safety Report 6534391-2 (Version None)
Quarter: 2010Q1

REPORT INFORMATION
  Report Type: 
  Country: None (occurrence: None)
  Receive Date: 20100108
  Receipt Date: 20100108
  Transmission Date: 20100710
  Serious: Yes (Hospitalization)
  Sender: FDA-Public Use
  Company Number: None

PATIENT
  Sex: Male
  Weight: 91 kg

DRUGS (1)
  1. RITUXIMAB (MOAB C2B8 ANTI CD20, CHIMERIC) [Suspect]
     Dosage: 840 MG
     Dates: end: 20090818

REACTIONS (4)
  - HYPERHIDROSIS [None]
  - MALAISE [None]
  - MUSCULOSKELETAL PAIN [None]
  - STAPHYLOCOCCAL INFECTION [None]
